FAERS Safety Report 17619078 (Version 2)
Quarter: 2020Q2

REPORT INFORMATION
  Report Type: Report from Study
  Country: US (occurrence: US)
  Receive Date: 20200402
  Receipt Date: 20200604
  Transmission Date: 20200713
  Serious: Yes (Hospitalization)
  Sender: FDA-Public Use
  Company Number: US-ENDO PHARMACEUTICALS INC-2020-002823

PATIENT
  Age: 4 Year
  Sex: Female
  Weight: 25.5 kg

DRUGS (10)
  1. METHOTREXATE SODIUM. [Suspect]
     Active Substance: METHOTREXATE SODIUM
     Indication: ACUTE LYMPHOCYTIC LEUKAEMIA
     Dosage: 16.25 MG (MAINTENANCE 8, 15, 22, 36, 43, 50, 57, 64, 71, 78)
     Route: 048
     Dates: start: 20191210, end: 20200303
  2. INCB018424 [Suspect]
     Active Substance: RUXOLITINIB
     Indication: ACUTE LYMPHOCYTIC LEUKAEMIA
     Dosage: 40 MG, BID (CONSOLIDATION, IM1, D1 PT1, DI PT 2, MC1 DAY 1-14, 29-33, 57-70)
     Route: 048
     Dates: start: 20190304, end: 20200210
  3. INCB018424 [Suspect]
     Active Substance: RUXOLITINIB
     Dosage: 45 MG, BID (IM2 DAYS 1-10, 21-30, 41-50)
     Route: 048
     Dates: start: 20191008, end: 20191130
  4. INCB018424 [Suspect]
     Active Substance: RUXOLITINIB
     Dosage: 45 MG, BID (IM2 DAYS 1-10, 21-30, 41-50)
     Route: 048
     Dates: start: 20200324
  5. METHOTREXATE. [Suspect]
     Active Substance: METHOTREXATE
     Indication: ACUTE LYMPHOCYTIC LEUKAEMIA
     Dosage: 12 MG (MC1D1, 29; MC2D1)
     Route: 037
     Dates: start: 20191203
  6. PREDNISONE. [Suspect]
     Active Substance: PREDNISONE
     Indication: ACUTE LYMPHOCYTIC LEUKAEMIA
     Dosage: 17.5 MG (MAINTENANCE CYCLE 2 DAY 1-5)
     Route: 048
     Dates: start: 20200225
  7. MERCAPTOPURINE. [Suspect]
     Active Substance: MERCAPTOPURINE
     Dosage: 63 MG (MAINTENANCE C1 DAY 1-84)
     Route: 048
     Dates: start: 20200313
  8. METHOTREXATE SODIUM. [Suspect]
     Active Substance: METHOTREXATE SODIUM
     Dosage: 16.25 MG (MAINTENANCE 8, 15, 22, 36, 43, 50, 57, 64, 71, 78)
     Route: 048
     Dates: start: 20200313
  9. MERCAPTOPURINE. [Suspect]
     Active Substance: MERCAPTOPURINE
     Indication: ACUTE LYMPHOCYTIC LEUKAEMIA
     Dosage: 63 MG (MAINTENANCE C1 DAY 1-84)
     Route: 048
     Dates: start: 20191203, end: 20200224
  10. VINCRISTINE [Concomitant]
     Active Substance: VINCRISTINE
     Indication: ACUTE LYMPHOCYTIC LEUKAEMIA
     Dosage: 1.34 MG (MAINTENANCE CYCLE 2 DAY 1)
     Route: 042
     Dates: start: 20200225

REACTIONS (3)
  - Febrile neutropenia [Recovered/Resolved]
  - Proctalgia [Recovered/Resolved]
  - Platelet count decreased [Recovered/Resolved]

NARRATIVE: CASE EVENT DATE: 20200302
